FAERS Safety Report 21363101 (Version 4)
Quarter: 2023Q1

REPORT INFORMATION
  Report Type: Spontaneous
  Country: US (occurrence: US)
  Receive Date: 20220922
  Receipt Date: 20230113
  Transmission Date: 20230418
  Serious: Yes (Hospitalization, Other)
  Sender: FDA-Public Use
  Company Number: US-BRISTOL-MYERS SQUIBB COMPANY-2022-109430

PATIENT
  Age: 64 Year
  Sex: Female

DRUGS (21)
  1. REVLIMID [Suspect]
     Active Substance: LENALIDOMIDE
     Indication: Marrow hyperplasia
     Dosage: DAILY FOR 21 DAYS, TAKE 1 CAPSULE BY MOUTH EVERY DAY FOR 21 DAYS THEN TAKE A 7 DAY BREAK
     Route: 048
     Dates: start: 20201109
  2. REVLIMID [Suspect]
     Active Substance: LENALIDOMIDE
     Indication: Myelofibrosis
     Dosage: ONCE DAILY X 21 DAYS THEN 7 DAYS OFF
     Route: 048
     Dates: start: 20210219
  3. REVLIMID [Suspect]
     Active Substance: LENALIDOMIDE
     Indication: Plasma cell myeloma
     Dosage: ONCE DAILY X 21 DAYS THEN 7 DAYS OFF
     Route: 048
     Dates: start: 20210520
  4. REVLIMID [Suspect]
     Active Substance: LENALIDOMIDE
     Indication: Chronic leukaemia
     Dosage: ONCE DAILY X 21 DAYS THEN 7 DAYS OFF
     Route: 048
     Dates: start: 20210910
  5. REVLIMID [Suspect]
     Active Substance: LENALIDOMIDE
     Indication: Myeloproliferative neoplasm
  6. REVLIMID [Suspect]
     Active Substance: LENALIDOMIDE
     Indication: Myelofibrosis
  7. ALLOPURINOL [Concomitant]
     Active Substance: ALLOPURINOL
     Indication: Product used for unknown indication
  8. CANDESARTAN [Concomitant]
     Active Substance: CANDESARTAN
     Indication: Product used for unknown indication
  9. COLCHICINE [Concomitant]
     Active Substance: COLCHICINE
     Indication: Product used for unknown indication
  10. FERROUS GLUCONATE [Concomitant]
     Active Substance: FERROUS GLUCONATE
     Indication: Product used for unknown indication
  11. FEXOFENADINE [Concomitant]
     Active Substance: FEXOFENADINE HYDROCHLORIDE
     Indication: Product used for unknown indication
  12. FLUOCINONIDE [Concomitant]
     Active Substance: FLUOCINONIDE
     Indication: Product used for unknown indication
     Dosage: 15GM
  13. FLUTICASONE [Concomitant]
     Active Substance: FLUTICASONE
     Indication: Product used for unknown indication
     Dosage: NAS SP (120SP)
  14. GABAPENTIN [Concomitant]
     Active Substance: GABAPENTIN
     Indication: Product used for unknown indication
  15. LIDOCAINE [Concomitant]
     Active Substance: LIDOCAINE
     Indication: Product used for unknown indication
     Dosage: PAIN RELIEF PATCH 5S
  16. MELOXICAM [Concomitant]
     Active Substance: MELOXICAM
     Indication: Product used for unknown indication
  17. MULTIVITAMIN [ASCORBIC ACID;COLECALCIFEROL;DEXPANTHENOL;NICOTINAMIDE;P [Concomitant]
     Indication: Product used for unknown indication
  18. NEXIUM [Concomitant]
     Active Substance: ESOMEPRAZOLE MAGNESIUM
     Indication: Product used for unknown indication
  19. OLOPATADINE [Concomitant]
     Active Substance: OLOPATADINE
     Indication: Product used for unknown indication
     Dosage: OPTH SOLN 2.5ML
  20. POTASSIUM CHLORIDE [Concomitant]
     Active Substance: POTASSIUM CHLORIDE
     Indication: Product used for unknown indication
     Dosage: 8MEQ TABLETS
  21. VITAMIN B12 [Concomitant]
     Active Substance: CYANOCOBALAMIN
     Indication: Product used for unknown indication

REACTIONS (7)
  - Blood potassium decreased [Unknown]
  - Joint dislocation [Unknown]
  - Gout [Unknown]
  - Bronchitis [Unknown]
  - Vomiting [Unknown]
  - Nasopharyngitis [Unknown]
  - Nausea [Unknown]

NARRATIVE: CASE EVENT DATE: 20220501
